FAERS Safety Report 25798289 (Version 4)
Quarter: 2025Q4

REPORT INFORMATION
  Report Type: Report from Study
  Country: US (occurrence: US)
  Receive Date: 20250912
  Receipt Date: 20251210
  Transmission Date: 20260118
  Serious: Yes (Other)
  Sender: ABBVIE
  Company Number: US-ABBVIE-6457087

PATIENT
  Age: 55 Year
  Sex: Female

DRUGS (4)
  1. RINVOQ [Suspect]
     Active Substance: UPADACITINIB
     Indication: Psoriatic arthropathy
     Dosage: STRENGTH:15MG
     Route: 048
     Dates: start: 20250515, end: 202508
  2. RINVOQ [Suspect]
     Active Substance: UPADACITINIB
     Indication: Psoriatic arthropathy
     Route: 048
     Dates: start: 202505
  3. RINVOQ [Suspect]
     Active Substance: UPADACITINIB
     Indication: Psoriatic arthropathy
     Dosage: STRENGTH:15MG
     Route: 048
     Dates: start: 202509, end: 20251105
  4. RINVOQ [Suspect]
     Active Substance: UPADACITINIB
     Indication: Psoriatic arthropathy
     Dosage: STRENGTH:15MG
     Route: 048
     Dates: start: 20251120

REACTIONS (11)
  - Limb reconstructive surgery [Unknown]
  - Postoperative wound infection [Not Recovered/Not Resolved]
  - Foot operation [Unknown]
  - Device dislocation [Unknown]
  - Osteomalacia [Unknown]
  - Peripheral swelling [Not Recovered/Not Resolved]
  - Wound dehiscence [Unknown]
  - Exostosis [Unknown]
  - Bone cyst [Unknown]
  - Joint swelling [Not Recovered/Not Resolved]
  - Pain in extremity [Unknown]

NARRATIVE: CASE EVENT DATE: 20250101
